FAERS Safety Report 7804326-0 (Version None)
Quarter: 2011Q4

REPORT INFORMATION
  Report Type: 
  Country: None (occurrence: None)
  Receive Date: 20111010
  Receipt Date: 20111004
  Transmission Date: 20120403
  Serious: Yes (Death, Hospitalization)
  Sender: FDA-Public Use
  Company Number: FR-BRISTOL-MYERS SQUIBB COMPANY-16058521

PATIENT
  Age: 54 Year
  Sex: Male
  Weight: 65 kg

DRUGS (4)
  1. GEMCITABINE HYDROCHLORIDE [Suspect]
     Indication: NON-SMALL CELL LUNG CANCER
     Dosage: IV INFUSION.LAST DOSE ONN 21JUL11,NO OF INFU=12,ON D1 AND D8 OF EACH 3WK CYCLE
     Route: 042
     Dates: start: 20110302, end: 20110721
  2. CISPLATIN [Suspect]
     Indication: NON-SMALL CELL LUNG CANCER
     Dosage: LAST DOSE ON 12JUL11.NO OF INFUSION-6
     Route: 042
     Dates: start: 20110302, end: 20110712
  3. CETUXIMAB [Suspect]
     Indication: NON-SMALL CELL LUNG CANCER
     Dosage: LAST DOSE ON 10AUG11,NO OF INFUSIONS:20  CETUXI IV INFUSION,STRENGHT;5MG/ML
     Route: 042
     Dates: start: 20110302, end: 20110810
  4. LIDOCAINE [Concomitant]
     Route: 062
     Dates: start: 20110904

REACTIONS (1)
  - PNEUMONIA [None]
